FAERS Safety Report 4948978-1 (Version None)
Quarter: 2006Q1

REPORT INFORMATION
  Report Type: 
  Country: None (occurrence: None)
  Receive Date: 20060321
  Receipt Date: 20060309
  Transmission Date: 20060701
  Serious: Yes (Hospitalization)
  Sender: FDA-Public Use
  Company Number: BE-BRISTOL-MYERS SQUIBB COMPANY-13310628

PATIENT
  Age: 32 Year
  Sex: Male
  Weight: 70 kg

DRUGS (2)
  1. REYATAZ [Suspect]
  2. DAPSONE [Suspect]
     Indication: ANTIBIOTIC PROPHYLAXIS
     Route: 048

REACTIONS (3)
  - METHAEMOGLOBINAEMIA [None]
  - OESOPHAGITIS [None]
  - PNEUMONIA [None]
